FAERS Safety Report 20561017 (Version 4)
Quarter: 2022Q2

REPORT INFORMATION
  Report Type: Spontaneous
  Country: PT (occurrence: PT)
  Receive Date: 20220307
  Receipt Date: 20220415
  Transmission Date: 20220720
  Serious: Yes (Death, Other)
  Sender: FDA-Public Use
  Company Number: PT-SA-SAC20220301001092

PATIENT

DRUGS (253)
  1. SODIUM PICOSULFATE [Suspect]
     Active Substance: SODIUM PICOSULFATE
     Indication: Product used for unknown indication
  2. SODIUM PICOSULFATE [Suspect]
     Active Substance: SODIUM PICOSULFATE
  3. SODIUM PICOSULFATE [Suspect]
     Active Substance: SODIUM PICOSULFATE
  4. ENOXAPARIN SODIUM [Suspect]
     Active Substance: ENOXAPARIN SODIUM
  5. DOCETAXEL [Suspect]
     Active Substance: DOCETAXEL
  6. SIMVASTATIN [Suspect]
     Active Substance: SIMVASTATIN
     Indication: Product used for unknown indication
  7. SIMVASTATIN [Suspect]
     Active Substance: SIMVASTATIN
  8. SIMVASTATIN [Suspect]
     Active Substance: SIMVASTATIN
     Dosage: UNK
  9. SIMVASTATIN [Suspect]
     Active Substance: SIMVASTATIN
  10. SIMVASTATIN [Suspect]
     Active Substance: SIMVASTATIN
     Route: 048
  11. MIRTAZAPINE [Suspect]
     Active Substance: MIRTAZAPINE
     Indication: Product used for unknown indication
  12. MIRTAZAPINE [Suspect]
     Active Substance: MIRTAZAPINE
  13. MIRTAZAPINE [Suspect]
     Active Substance: MIRTAZAPINE
  14. MIRTAZAPINE [Suspect]
     Active Substance: MIRTAZAPINE
  15. MIRTAZAPINE [Suspect]
     Active Substance: MIRTAZAPINE
     Route: 048
  16. EZETIMIBE [Suspect]
     Active Substance: EZETIMIBE
     Indication: Product used for unknown indication
  17. EZETIMIBE [Suspect]
     Active Substance: EZETIMIBE
  18. EZETIMIBE [Suspect]
     Active Substance: EZETIMIBE
     Route: 065
  19. EZETIMIBE [Suspect]
     Active Substance: EZETIMIBE
  20. EZETIMIBE [Suspect]
     Active Substance: EZETIMIBE
  21. EZETIMIBE [Suspect]
     Active Substance: EZETIMIBE
     Route: 048
  22. TAMSULOSIN HYDROCHLORIDE [Suspect]
     Active Substance: TAMSULOSIN HYDROCHLORIDE
     Indication: Product used for unknown indication
  23. TAMSULOSIN HYDROCHLORIDE [Suspect]
     Active Substance: TAMSULOSIN HYDROCHLORIDE
  24. TAMSULOSIN HYDROCHLORIDE [Suspect]
     Active Substance: TAMSULOSIN HYDROCHLORIDE
  25. CELECOXIB [Suspect]
     Active Substance: CELECOXIB
     Indication: Product used for unknown indication
     Dosage: 100 MG
  26. CELECOXIB [Suspect]
     Active Substance: CELECOXIB
  27. CELECOXIB [Suspect]
     Active Substance: CELECOXIB
  28. CELECOXIB [Suspect]
     Active Substance: CELECOXIB
  29. CELECOXIB [Suspect]
     Active Substance: CELECOXIB
  30. LETROZOLE [Suspect]
     Active Substance: LETROZOLE
     Indication: Product used for unknown indication
     Dosage: UNK
  31. LETROZOLE [Suspect]
     Active Substance: LETROZOLE
  32. LETROZOLE [Suspect]
     Active Substance: LETROZOLE
  33. LETROZOLE [Suspect]
     Active Substance: LETROZOLE
  34. LETROZOLE [Suspect]
     Active Substance: LETROZOLE
  35. CODEINE [Suspect]
     Active Substance: CODEINE
     Indication: Product used for unknown indication
  36. CODEINE [Suspect]
     Active Substance: CODEINE
  37. CODEINE [Suspect]
     Active Substance: CODEINE
  38. LEVOCETIRIZINE [Suspect]
     Active Substance: LEVOCETIRIZINE
     Indication: Product used for unknown indication
  39. EXEMESTANE [Suspect]
     Active Substance: EXEMESTANE
     Indication: Product used for unknown indication
  40. EXEMESTANE [Suspect]
     Active Substance: EXEMESTANE
  41. EXEMESTANE [Suspect]
     Active Substance: EXEMESTANE
  42. EXEMESTANE [Suspect]
     Active Substance: EXEMESTANE
  43. EXEMESTANE [Suspect]
     Active Substance: EXEMESTANE
  44. PENTOXIFYLLINE [Suspect]
     Active Substance: PENTOXIFYLLINE
     Indication: Product used for unknown indication
  45. PENTOXIFYLLINE [Suspect]
     Active Substance: PENTOXIFYLLINE
  46. PENTOXIFYLLINE [Suspect]
     Active Substance: PENTOXIFYLLINE
  47. PENTOXIFYLLINE [Suspect]
     Active Substance: PENTOXIFYLLINE
  48. PENTOXIFYLLINE [Suspect]
     Active Substance: PENTOXIFYLLINE
  49. AGOMELATINE [Suspect]
     Active Substance: AGOMELATINE
     Indication: Product used for unknown indication
  50. AGOMELATINE [Suspect]
     Active Substance: AGOMELATINE
  51. AGOMELATINE [Suspect]
     Active Substance: AGOMELATINE
     Dosage: UNK
  52. AGOMELATINE [Suspect]
     Active Substance: AGOMELATINE
  53. AGOMELATINE [Suspect]
     Active Substance: AGOMELATINE
  54. HYDROMORPHONE [Suspect]
     Active Substance: HYDROMORPHONE
     Indication: Product used for unknown indication
  55. HYDROMORPHONE [Suspect]
     Active Substance: HYDROMORPHONE
  56. HYDROMORPHONE [Suspect]
     Active Substance: HYDROMORPHONE
  57. HYDROMORPHONE [Suspect]
     Active Substance: HYDROMORPHONE
  58. HYDROMORPHONE [Suspect]
     Active Substance: HYDROMORPHONE
  59. FENOFIBRATE [Suspect]
     Active Substance: FENOFIBRATE
     Indication: Product used for unknown indication
  60. FENOFIBRATE [Suspect]
     Active Substance: FENOFIBRATE
  61. FENOFIBRATE [Suspect]
     Active Substance: FENOFIBRATE
  62. FENOFIBRATE [Suspect]
     Active Substance: FENOFIBRATE
  63. FENOFIBRATE [Suspect]
     Active Substance: FENOFIBRATE
  64. HYDROCHLOROTHIAZIDE [Suspect]
     Active Substance: HYDROCHLOROTHIAZIDE
     Indication: Product used for unknown indication
  65. HYDROCHLOROTHIAZIDE [Suspect]
     Active Substance: HYDROCHLOROTHIAZIDE
  66. HYDROCHLOROTHIAZIDE [Suspect]
     Active Substance: HYDROCHLOROTHIAZIDE
  67. HYDROCHLOROTHIAZIDE [Suspect]
     Active Substance: HYDROCHLOROTHIAZIDE
  68. HYDROCHLOROTHIAZIDE [Suspect]
     Active Substance: HYDROCHLOROTHIAZIDE
  69. ESOMEPRAZOLE [Suspect]
     Active Substance: ESOMEPRAZOLE
     Indication: Product used for unknown indication
  70. ESOMEPRAZOLE [Suspect]
     Active Substance: ESOMEPRAZOLE
  71. ESOMEPRAZOLE [Suspect]
     Active Substance: ESOMEPRAZOLE
  72. ESOMEPRAZOLE [Suspect]
     Active Substance: ESOMEPRAZOLE
  73. ESOMEPRAZOLE [Suspect]
     Active Substance: ESOMEPRAZOLE
  74. TELMISARTAN [Suspect]
     Active Substance: TELMISARTAN
     Indication: Product used for unknown indication
  75. TELMISARTAN [Suspect]
     Active Substance: TELMISARTAN
  76. TELMISARTAN [Suspect]
     Active Substance: TELMISARTAN
  77. TELMISARTAN [Suspect]
     Active Substance: TELMISARTAN
  78. TELMISARTAN [Suspect]
     Active Substance: TELMISARTAN
  79. ATORVASTATIN [Suspect]
     Active Substance: ATORVASTATIN
     Indication: Product used for unknown indication
  80. ATORVASTATIN [Suspect]
     Active Substance: ATORVASTATIN
  81. ATORVASTATIN [Suspect]
     Active Substance: ATORVASTATIN
  82. ATORVASTATIN [Suspect]
     Active Substance: ATORVASTATIN
  83. ATORVASTATIN [Suspect]
     Active Substance: ATORVASTATIN
  84. ACETAMINOPHEN [Suspect]
     Active Substance: ACETAMINOPHEN
     Indication: Product used for unknown indication
  85. ACETAMINOPHEN [Suspect]
     Active Substance: ACETAMINOPHEN
  86. ACETAMINOPHEN [Suspect]
     Active Substance: ACETAMINOPHEN
  87. ACETAMINOPHEN [Suspect]
     Active Substance: ACETAMINOPHEN
  88. ACETAMINOPHEN [Suspect]
     Active Substance: ACETAMINOPHEN
  89. BRINZOLAMIDE [Suspect]
     Active Substance: BRINZOLAMIDE
     Indication: Product used for unknown indication
  90. BRINZOLAMIDE [Suspect]
     Active Substance: BRINZOLAMIDE
  91. BRINZOLAMIDE [Suspect]
     Active Substance: BRINZOLAMIDE
  92. BRINZOLAMIDE [Suspect]
     Active Substance: BRINZOLAMIDE
  93. BRINZOLAMIDE [Suspect]
     Active Substance: BRINZOLAMIDE
  94. ACECLOFENAC [Suspect]
     Active Substance: ACECLOFENAC
     Indication: Product used for unknown indication
     Dosage: 100 MG
  95. ACECLOFENAC [Suspect]
     Active Substance: ACECLOFENAC
  96. ACECLOFENAC [Suspect]
     Active Substance: ACECLOFENAC
  97. ACECLOFENAC [Suspect]
     Active Substance: ACECLOFENAC
  98. ACECLOFENAC [Suspect]
     Active Substance: ACECLOFENAC
  99. ANASTROZOLE [Suspect]
     Active Substance: ANASTROZOLE
     Indication: Product used for unknown indication
  100. ANASTROZOLE [Suspect]
     Active Substance: ANASTROZOLE
  101. ANASTROZOLE [Suspect]
     Active Substance: ANASTROZOLE
  102. ANASTROZOLE [Suspect]
     Active Substance: ANASTROZOLE
  103. ANASTROZOLE [Suspect]
     Active Substance: ANASTROZOLE
  104. GLUCOSAMINE [Suspect]
     Active Substance: GLUCOSAMINE
     Indication: Product used for unknown indication
     Dosage: 1500 MG
  105. GLUCOSAMINE [Suspect]
     Active Substance: GLUCOSAMINE
  106. GLUCOSAMINE [Suspect]
     Active Substance: GLUCOSAMINE
  107. GLUCOSAMINE [Suspect]
     Active Substance: GLUCOSAMINE
  108. GLUCOSAMINE [Suspect]
     Active Substance: GLUCOSAMINE
  109. IBANDRONIC ACID [Suspect]
     Active Substance: IBANDRONIC ACID
     Indication: Product used for unknown indication
  110. IBANDRONIC ACID [Suspect]
     Active Substance: IBANDRONIC ACID
  111. IBANDRONIC ACID [Suspect]
     Active Substance: IBANDRONIC ACID
     Dosage: UNK
  112. IBANDRONIC ACID [Suspect]
     Active Substance: IBANDRONIC ACID
  113. IBANDRONIC ACID [Suspect]
     Active Substance: IBANDRONIC ACID
  114. IMATINIB [Suspect]
     Active Substance: IMATINIB
     Indication: Product used for unknown indication
  115. IMATINIB [Suspect]
     Active Substance: IMATINIB
  116. ESCHERICHIA COLI [Suspect]
     Active Substance: ESCHERICHIA COLI
     Indication: Product used for unknown indication
  117. ESCHERICHIA COLI [Suspect]
     Active Substance: ESCHERICHIA COLI
  118. ESCHERICHIA COLI [Suspect]
     Active Substance: ESCHERICHIA COLI
  119. ESCHERICHIA COLI [Suspect]
     Active Substance: ESCHERICHIA COLI
     Route: 065
  120. ESCHERICHIA COLI [Suspect]
     Active Substance: ESCHERICHIA COLI
  121. PREGABALIN [Suspect]
     Active Substance: PREGABALIN
     Indication: Product used for unknown indication
     Dosage: 50 MG
  122. PREGABALIN [Suspect]
     Active Substance: PREGABALIN
  123. PREGABALIN [Suspect]
     Active Substance: PREGABALIN
  124. PREGABALIN [Suspect]
     Active Substance: PREGABALIN
  125. PREGABALIN [Suspect]
     Active Substance: PREGABALIN
  126. PREGABALIN [Suspect]
     Active Substance: PREGABALIN
  127. RIBAVIRIN [Suspect]
     Active Substance: RIBAVIRIN
     Indication: Product used for unknown indication
  128. RIBAVIRIN [Suspect]
     Active Substance: RIBAVIRIN
  129. RIBAVIRIN [Suspect]
     Active Substance: RIBAVIRIN
  130. RIBAVIRIN [Suspect]
     Active Substance: RIBAVIRIN
  131. DUTASTERIDE [Suspect]
     Active Substance: DUTASTERIDE
     Indication: Product used for unknown indication
  132. DUTASTERIDE [Suspect]
     Active Substance: DUTASTERIDE
  133. DUTASTERIDE [Suspect]
     Active Substance: DUTASTERIDE
     Route: 065
  134. DUTASTERIDE [Suspect]
     Active Substance: DUTASTERIDE
  135. DUTASTERIDE [Suspect]
     Active Substance: DUTASTERIDE
  136. DUTASTERIDE [Suspect]
     Active Substance: DUTASTERIDE
  137. DOMPERIDONE [Suspect]
     Active Substance: DOMPERIDONE
     Indication: Product used for unknown indication
  138. DOMPERIDONE [Suspect]
     Active Substance: DOMPERIDONE
  139. DOMPERIDONE [Suspect]
     Active Substance: DOMPERIDONE
  140. DOMPERIDONE [Suspect]
     Active Substance: DOMPERIDONE
  141. DOMPERIDONE [Suspect]
     Active Substance: DOMPERIDONE
  142. NORFLOXACIN [Suspect]
     Active Substance: NORFLOXACIN
     Indication: Product used for unknown indication
  143. NORFLOXACIN [Suspect]
     Active Substance: NORFLOXACIN
  144. NORFLOXACIN [Suspect]
     Active Substance: NORFLOXACIN
  145. NORFLOXACIN [Suspect]
     Active Substance: NORFLOXACIN
     Route: 065
  146. NORFLOXACIN [Suspect]
     Active Substance: NORFLOXACIN
  147. NIMESULIDE [Suspect]
     Active Substance: NIMESULIDE
     Indication: Product used for unknown indication
  148. NIMESULIDE [Suspect]
     Active Substance: NIMESULIDE
  149. NIMESULIDE [Suspect]
     Active Substance: NIMESULIDE
     Route: 065
  150. NIMESULIDE [Suspect]
     Active Substance: NIMESULIDE
  151. NIMESULIDE [Suspect]
     Active Substance: NIMESULIDE
  152. NIMESULIDE [Suspect]
     Active Substance: NIMESULIDE
  153. ASPIRIN [Suspect]
     Active Substance: ASPIRIN
     Indication: Product used for unknown indication
     Dosage: 100 MG
  154. ASPIRIN [Suspect]
     Active Substance: ASPIRIN
  155. ZOLEDRONIC ACID [Suspect]
     Active Substance: ZOLEDRONIC ACID
     Indication: Product used for unknown indication
  156. ZOLEDRONIC ACID [Suspect]
     Active Substance: ZOLEDRONIC ACID
  157. ZOLEDRONIC ACID [Suspect]
     Active Substance: ZOLEDRONIC ACID
  158. ZOLEDRONIC ACID [Suspect]
     Active Substance: ZOLEDRONIC ACID
     Route: 065
  159. ZOLEDRONIC ACID [Suspect]
     Active Substance: ZOLEDRONIC ACID
  160. BUPRENORPHINE [Suspect]
     Active Substance: BUPRENORPHINE
     Indication: Product used for unknown indication
     Dosage: 35 G/H
     Route: 062
  161. BUPRENORPHINE [Suspect]
     Active Substance: BUPRENORPHINE
  162. BUPRENORPHINE [Suspect]
     Active Substance: BUPRENORPHINE
  163. BUPRENORPHINE [Suspect]
     Active Substance: BUPRENORPHINE
     Dosage: ROUTE: TD
  164. BUPRENORPHINE [Suspect]
     Active Substance: BUPRENORPHINE
     Route: 062
  165. FLUOXETINE [Suspect]
     Active Substance: FLUOXETINE HYDROCHLORIDE
     Indication: Product used for unknown indication
  166. FLUOXETINE [Suspect]
     Active Substance: FLUOXETINE HYDROCHLORIDE
  167. FLUOXETINE [Suspect]
     Active Substance: FLUOXETINE HYDROCHLORIDE
     Route: 065
  168. FLUOXETINE [Suspect]
     Active Substance: FLUOXETINE HYDROCHLORIDE
  169. ALENDRONATE SODIUM [Suspect]
     Active Substance: ALENDRONATE SODIUM
     Indication: Product used for unknown indication
  170. ALENDRONATE SODIUM [Suspect]
     Active Substance: ALENDRONATE SODIUM
     Dosage: N | MUNEONTINUED ON ATTACHMENT} {CONTINUED ON A
  171. ALENDRONATE SODIUM [Suspect]
     Active Substance: ALENDRONATE SODIUM
     Route: 048
  172. BISOPROLOL FUMARATE [Suspect]
     Active Substance: BISOPROLOL FUMARATE
     Indication: Product used for unknown indication
  173. BISOPROLOL FUMARATE [Suspect]
     Active Substance: BISOPROLOL FUMARATE
     Route: 065
  174. BISOPROLOL FUMARATE [Suspect]
     Active Substance: BISOPROLOL FUMARATE
  175. VERAPAMIL HYDROCHLORIDE [Suspect]
     Active Substance: VERAPAMIL HYDROCHLORIDE
     Indication: Product used for unknown indication
  176. VERAPAMIL HYDROCHLORIDE [Suspect]
     Active Substance: VERAPAMIL HYDROCHLORIDE
  177. DILTIAZEM HYDROCHLORIDE [Suspect]
     Active Substance: DILTIAZEM HYDROCHLORIDE
     Indication: Product used for unknown indication
  178. DILTIAZEM HYDROCHLORIDE [Suspect]
     Active Substance: DILTIAZEM HYDROCHLORIDE
  179. PRAVASTATIN SODIUM [Suspect]
     Active Substance: PRAVASTATIN SODIUM
     Indication: Product used for unknown indication
  180. PRAVASTATIN SODIUM [Suspect]
     Active Substance: PRAVASTATIN SODIUM
  181. VENLAFAXINE HYDROCHLORIDE [Suspect]
     Active Substance: VENLAFAXINE HYDROCHLORIDE
     Indication: Product used for unknown indication
  182. VENLAFAXINE HYDROCHLORIDE [Suspect]
     Active Substance: VENLAFAXINE HYDROCHLORIDE
  183. CODEINE SULFATE [Suspect]
     Active Substance: CODEINE SULFATE
     Indication: Product used for unknown indication
     Dosage: UNK
  184. ESCITALOPRAM OXALATE [Suspect]
     Active Substance: ESCITALOPRAM OXALATE
     Indication: Product used for unknown indication
  185. ESCITALOPRAM OXALATE [Suspect]
     Active Substance: ESCITALOPRAM OXALATE
  186. TRAMADOL HYDROCHLORIDE [Suspect]
     Active Substance: TRAMADOL HYDROCHLORIDE
     Indication: Product used for unknown indication
  187. TRAMADOL HYDROCHLORIDE [Suspect]
     Active Substance: TRAMADOL HYDROCHLORIDE
  188. POTASSIUM IODIDE [Suspect]
     Active Substance: POTASSIUM IODIDE
     Indication: Product used for unknown indication
  189. POTASSIUM IODIDE [Suspect]
     Active Substance: POTASSIUM IODIDE
  190. POTASSIUM IODIDE [Suspect]
     Active Substance: POTASSIUM IODIDE
     Route: 065
  191. POTASSIUM IODIDE [Suspect]
     Active Substance: POTASSIUM IODIDE
  192. ETANERCEPT [Suspect]
     Active Substance: ETANERCEPT
     Indication: Product used for unknown indication
     Dosage: UNK
  193. ETANERCEPT [Suspect]
     Active Substance: ETANERCEPT
  194. ETANERCEPT [Suspect]
     Active Substance: ETANERCEPT
  195. SOFOSBUVIR [Suspect]
     Active Substance: SOFOSBUVIR
     Indication: Product used for unknown indication
     Dosage: UNK
  196. SOFOSBUVIR [Suspect]
     Active Substance: SOFOSBUVIR
  197. SOFOSBUVIR [Suspect]
     Active Substance: SOFOSBUVIR
  198. ALISKIREN [Suspect]
     Active Substance: ALISKIREN
     Indication: Product used for unknown indication
     Dosage: UNK
  199. ALISKIREN [Suspect]
     Active Substance: ALISKIREN
  200. ALISKIREN [Suspect]
     Active Substance: ALISKIREN
  201. ADALIMUMAB [Suspect]
     Active Substance: ADALIMUMAB
     Indication: Product used for unknown indication
  202. ADALIMUMAB [Suspect]
     Active Substance: ADALIMUMAB
  203. ADALIMUMAB [Suspect]
     Active Substance: ADALIMUMAB
  204. HUMAN IMMUNOGLOBULIN G [Suspect]
     Active Substance: HUMAN IMMUNOGLOBULIN G
     Indication: Product used for unknown indication
     Dosage: UNK
  205. HUMAN IMMUNOGLOBULIN G [Suspect]
     Active Substance: HUMAN IMMUNOGLOBULIN G
  206. HUMAN IMMUNOGLOBULIN G [Suspect]
     Active Substance: HUMAN IMMUNOGLOBULIN G
  207. MYCOPHENOLIC ACID [Suspect]
     Active Substance: MYCOPHENOLIC ACID
     Indication: Product used for unknown indication
  208. MYCOPHENOLIC ACID [Suspect]
     Active Substance: MYCOPHENOLIC ACID
  209. MYCOPHENOLIC ACID [Suspect]
     Active Substance: MYCOPHENOLIC ACID
  210. PITAVASTATIN [Suspect]
     Active Substance: PITAVASTATIN
     Indication: Product used for unknown indication
  211. PITAVASTATIN [Suspect]
     Active Substance: PITAVASTATIN
  212. PITAVASTATIN [Suspect]
     Active Substance: PITAVASTATIN
  213. GINKGO [Suspect]
     Active Substance: GINKGO
     Indication: Product used for unknown indication
  214. GINKGO [Suspect]
     Active Substance: GINKGO
  215. GINKGO [Suspect]
     Active Substance: GINKGO
  216. CHOLECALCIFEROL [Suspect]
     Active Substance: CHOLECALCIFEROL
     Indication: Product used for unknown indication
  217. CHOLECALCIFEROL [Suspect]
     Active Substance: CHOLECALCIFEROL
  218. CHOLECALCIFEROL [Suspect]
     Active Substance: CHOLECALCIFEROL
  219. VORTIOXETINE [Suspect]
     Active Substance: VORTIOXETINE
     Indication: Product used for unknown indication
     Dosage: UNK
  220. VORTIOXETINE [Suspect]
     Active Substance: VORTIOXETINE
  221. VORTIOXETINE [Suspect]
     Active Substance: VORTIOXETINE
  222. PROPRANOLOL [Suspect]
     Active Substance: PROPRANOLOL HYDROCHLORIDE
     Indication: Product used for unknown indication
  223. PROPRANOLOL [Suspect]
     Active Substance: PROPRANOLOL HYDROCHLORIDE
  224. PROPRANOLOL [Suspect]
     Active Substance: PROPRANOLOL HYDROCHLORIDE
  225. FLUVASTATIN [Suspect]
     Active Substance: FLUVASTATIN SODIUM
     Indication: Product used for unknown indication
  226. FLUVASTATIN [Suspect]
     Active Substance: FLUVASTATIN SODIUM
  227. FLUVASTATIN [Suspect]
     Active Substance: FLUVASTATIN SODIUM
  228. NILOTINIB [Suspect]
     Active Substance: NILOTINIB
     Indication: Product used for unknown indication
  229. NILOTINIB [Suspect]
     Active Substance: NILOTINIB
  230. NILOTINIB [Suspect]
     Active Substance: NILOTINIB
  231. ESCHERICHIA COLI [Suspect]
     Active Substance: ESCHERICHIA COLI
     Indication: Product used for unknown indication
  232. ESCHERICHIA COLI [Suspect]
     Active Substance: ESCHERICHIA COLI
  233. ESCHERICHIA COLI [Suspect]
     Active Substance: ESCHERICHIA COLI
  234. RIBAVIRIN [Suspect]
     Active Substance: RIBAVIRIN
  235. SERTRALINE HYDROCHLORIDE [Suspect]
     Active Substance: SERTRALINE HYDROCHLORIDE
     Indication: Product used for unknown indication
  236. NITROGLYCERIN [Suspect]
     Active Substance: NITROGLYCERIN
     Indication: Product used for unknown indication
  237. NITROGLYCERIN [Suspect]
     Active Substance: NITROGLYCERIN
  238. NITROGLYCERIN [Suspect]
     Active Substance: NITROGLYCERIN
  239. CILAZAPRIL ANHYDROUS [Suspect]
     Active Substance: CILAZAPRIL ANHYDROUS
     Indication: Product used for unknown indication
  240. CILAZAPRIL ANHYDROUS [Suspect]
     Active Substance: CILAZAPRIL ANHYDROUS
  241. CILAZAPRIL ANHYDROUS [Suspect]
     Active Substance: CILAZAPRIL ANHYDROUS
  242. LEDIPASVIR [Suspect]
     Active Substance: LEDIPASVIR
     Indication: Product used for unknown indication
  243. LEDIPASVIR [Suspect]
     Active Substance: LEDIPASVIR
  244. LEDIPASVIR [Suspect]
     Active Substance: LEDIPASVIR
  245. VENLAFAXINE [Suspect]
     Active Substance: VENLAFAXINE HYDROCHLORIDE
     Indication: Product used for unknown indication
  246. VENLAFAXINE [Suspect]
     Active Substance: VENLAFAXINE HYDROCHLORIDE
     Route: 065
  247. VENLAFAXINE [Suspect]
     Active Substance: VENLAFAXINE HYDROCHLORIDE
  248. TALWIN COMPOUND [Suspect]
     Active Substance: ASPIRIN\PENTAZOCINE HYDROCHLORIDE
     Indication: Product used for unknown indication
  249. INDOMETHACIN [Suspect]
     Active Substance: INDOMETHACIN
     Indication: Product used for unknown indication
  250. DONEPEZIL [Suspect]
     Active Substance: DONEPEZIL
     Indication: Product used for unknown indication
     Route: 048
  251. DONEPEZIL [Suspect]
     Active Substance: DONEPEZIL
     Route: 048
  252. DONEPEZIL [Suspect]
     Active Substance: DONEPEZIL
     Route: 048
  253. FLUOXETINE HYDROCHLORIDE [Suspect]
     Active Substance: FLUOXETINE HYDROCHLORIDE
     Indication: Product used for unknown indication

REACTIONS (45)
  - Sepsis [Fatal]
  - Cardio-respiratory arrest [Fatal]
  - Altered state of consciousness [Fatal]
  - Haemorrhagic stroke [Fatal]
  - Haematuria [Fatal]
  - Headache [Fatal]
  - Vomiting [Unknown]
  - Ocular discomfort [Unknown]
  - Somnolence [Unknown]
  - Haematemesis [Unknown]
  - Ascites [Unknown]
  - Abdominal pain [Unknown]
  - Asthenia [Unknown]
  - Fatigue [Unknown]
  - Cough [Unknown]
  - Generalised oedema [Unknown]
  - Insomnia [Unknown]
  - Myalgia [Unknown]
  - Head discomfort [Unknown]
  - Vision blurred [Unknown]
  - Arthralgia [Unknown]
  - Nausea [Unknown]
  - Presyncope [Unknown]
  - Blindness [Unknown]
  - Pruritus [Unknown]
  - Photophobia [Unknown]
  - Diarrhoea [Unknown]
  - Malaise [Unknown]
  - Urinary tract disorder [Unknown]
  - Diplopia [Unknown]
  - Blood pressure increased [Unknown]
  - Syncope [Unknown]
  - Abdominal pain upper [Unknown]
  - Coma [Unknown]
  - Dizziness [Unknown]
  - Tachycardia [Unknown]
  - Tinnitus [Unknown]
  - Dyspnoea [Unknown]
  - Eye pain [Unknown]
  - Fall [Unknown]
  - Pyrexia [Unknown]
  - Amaurosis fugax [Unknown]
  - Chills [Unknown]
  - Decreased appetite [Unknown]
  - Drug interaction [Unknown]
